FAERS Safety Report 18004672 (Version 5)
Quarter: 2021Q1

REPORT INFORMATION
  Report Type: Spontaneous
  Country: US (occurrence: US)
  Receive Date: 20200710
  Receipt Date: 20210318
  Transmission Date: 20210419
  Serious: Yes (Other)
  Sender: FDA-Public Use
  Company Number: US-GILEAD-2020-0479793

PATIENT
  Age: 54 Year
  Sex: Male
  Weight: 88.89 kg

DRUGS (19)
  1. VIREAD [Suspect]
     Active Substance: TENOFOVIR DISOPROXIL FUMARATE
     Indication: HIV INFECTION
     Dosage: UNK
     Route: 048
     Dates: start: 200401, end: 200801
  2. BERBERINE [Concomitant]
     Active Substance: BERBERINE
  3. CBD OIL [Concomitant]
     Active Substance: CANNABIDIOL\HERBALS
  4. TRUVADA [Suspect]
     Active Substance: EMTRICITABINE\TENOFOVIR DISOPROXIL FUMARATE
     Dosage: UNK
     Route: 048
     Dates: start: 2007, end: 2007
  5. TRUVADA [Suspect]
     Active Substance: EMTRICITABINE\TENOFOVIR DISOPROXIL FUMARATE
     Dosage: UNK
     Route: 048
     Dates: start: 2012, end: 2018
  6. PREZCOBIX [Concomitant]
     Active Substance: COBICISTAT\DARUNAVIR ETHANOLATE
  7. NOVOLOG [Concomitant]
     Active Substance: INSULIN ASPART
  8. LEVEMIR [Concomitant]
     Active Substance: INSULIN DETEMIR
  9. TRUVADA [Suspect]
     Active Substance: EMTRICITABINE\TENOFOVIR DISOPROXIL FUMARATE
     Indication: HIV INFECTION
     Dosage: UNK
     Route: 048
     Dates: start: 20050120, end: 20080120
  10. COMBIVIR [Concomitant]
     Active Substance: LAMIVUDINE\ZIDOVUDINE
  11. RETROVIR [Concomitant]
     Active Substance: ZIDOVUDINE
  12. FUROSEMIDE. [Concomitant]
     Active Substance: FUROSEMIDE
  13. ASHWAGANDHA [WITHANIA SOMNIFERA ROOT] [Concomitant]
  14. NORVIR [Concomitant]
     Active Substance: RITONAVIR
  15. REYATAZ [Concomitant]
     Active Substance: ATAZANAVIR SULFATE
  16. MORPHINE [Concomitant]
     Active Substance: MORPHINE
  17. OXYCODONE [Concomitant]
     Active Substance: OXYCODONE
  18. VITAMIN B12 [Concomitant]
     Active Substance: CYANOCOBALAMIN
  19. DESCOVY [Concomitant]
     Active Substance: EMTRICITABINE\TENOFOVIR ALAFENAMIDE FUMARATE

REACTIONS (17)
  - Pain [Not Recovered/Not Resolved]
  - Emotional distress [Not Recovered/Not Resolved]
  - Depression [Not Recovered/Not Resolved]
  - Osteoporosis [Not Recovered/Not Resolved]
  - Bone density decreased [Not Recovered/Not Resolved]
  - Hypertension [Not Recovered/Not Resolved]
  - Protein total abnormal [Recovered/Resolved]
  - Renal impairment [Not Recovered/Not Resolved]
  - Chronic kidney disease [Unknown]
  - Renal failure [Recovered/Resolved]
  - Multiple fractures [Unknown]
  - Anxiety [Not Recovered/Not Resolved]
  - Osteonecrosis [Unknown]
  - Renal failure [Not Recovered/Not Resolved]
  - Bone loss [Unknown]
  - Anhedonia [Not Recovered/Not Resolved]
  - Blood creatinine increased [Recovered/Resolved]

NARRATIVE: CASE EVENT DATE: 200601
